FAERS Safety Report 5693972-9 (Version None)
Quarter: 2008Q2

REPORT INFORMATION
  Report Type: 
  Country: None (occurrence: None)
  Receive Date: 20080403
  Receipt Date: 20080331
  Transmission Date: 20081010
  Serious: Yes (Life-Threatening)
  Sender: FDA-Public Use
  Company Number: US-BOEHRINGER INGELHEIM GMBH, GERMANY-2008-DE-01904GD

PATIENT

DRUGS (1)
  1. MORPHINE SULFATE [Suspect]
     Indication: ANALGESIC THERAPY

REACTIONS (2)
  - DRUG PRESCRIBING ERROR [None]
  - RESPIRATORY DEPRESSION [None]
